FAERS Safety Report 12774601 (Version 1)
Quarter: 2016Q3

REPORT INFORMATION
  Report Type: Report from Study
  Country: GR (occurrence: GR)
  Receive Date: 20160923
  Receipt Date: 20160923
  Transmission Date: 20161109
  Serious: Yes (Death, Other)
  Sender: FDA-Public Use
  Company Number: PHHY2016GR130902

PATIENT
  Age: 67 Year
  Sex: Female

DRUGS (3)
  1. TAFINLAR [Suspect]
     Active Substance: DABRAFENIB MESYLATE
     Dosage: 75 MG, UNK
     Route: 065
  2. TAFINLAR [Suspect]
     Active Substance: DABRAFENIB MESYLATE
     Indication: METASTATIC MALIGNANT MELANOMA
     Dosage: 75 MG, BID
     Route: 065
     Dates: start: 201505
  3. ATORVASTATIN [Concomitant]
     Active Substance: ATORVASTATIN
     Indication: PRODUCT USED FOR UNKNOWN INDICATION
     Dosage: UNK
     Route: 065

REACTIONS (6)
  - Septic shock [Fatal]
  - Malignant neoplasm progression [Unknown]
  - Palmoplantar keratoderma [Unknown]
  - Oedema peripheral [Unknown]
  - Rash [Unknown]
  - Blood lactate dehydrogenase increased [Unknown]
